FAERS Safety Report 12910065 (Version 4)
Quarter: 2020Q2

REPORT INFORMATION
  Report Type: Spontaneous
  Country: US (occurrence: US)
  Receive Date: 20161104
  Receipt Date: 20200423
  Transmission Date: 20200713
  Serious: Yes (Hospitalization)
  Sender: FDA-Public Use
  Company Number: US-JNJFOC-20161019405

PATIENT
  Age: 85 Year
  Sex: Female

DRUGS (6)
  1. XARELTO [Suspect]
     Active Substance: RIVAROXABAN
     Indication: ATRIAL FIBRILLATION
  2. ASPIRIN. [Suspect]
     Active Substance: ASPIRIN
     Indication: THROMBOSIS
  3. XARELTO [Suspect]
     Active Substance: RIVAROXABAN
     Indication: CEREBROVASCULAR ACCIDENT PROPHYLAXIS
     Route: 048
     Dates: start: 20130510, end: 20160602
  4. XARELTO [Suspect]
     Active Substance: RIVAROXABAN
     Indication: PULMONARY EMBOLISM
  5. XARELTO [Suspect]
     Active Substance: RIVAROXABAN
     Indication: THROMBOSIS
  6. ASPIRIN. [Suspect]
     Active Substance: ASPIRIN
     Indication: PULMONARY EMBOLISM
     Route: 065
     Dates: end: 201606

REACTIONS (1)
  - Diverticulum intestinal haemorrhagic [Recovering/Resolving]

NARRATIVE: CASE EVENT DATE: 20160602
